FAERS Safety Report 9629392 (Version 1)
Quarter: 2013Q4

REPORT INFORMATION
  Report Type: Spontaneous
  Country: US (occurrence: US)
  Receive Date: 20131017
  Receipt Date: 20131017
  Transmission Date: 20140711
  Serious: No
  Sender: FDA-Public Use
  Company Number: US-ASTRAZENECA-2013SE49945

PATIENT
  Age: 69 Year
  Sex: Female
  Weight: 113.4 kg

DRUGS (11)
  1. CRESTOR [Suspect]
     Indication: BLOOD CHOLESTEROL INCREASED
     Route: 048
     Dates: start: 2012, end: 2013
  2. CRESTOR [Suspect]
     Indication: BLOOD CHOLESTEROL INCREASED
     Route: 048
     Dates: start: 2013, end: 201306
  3. COENZYME 10 [Concomitant]
     Indication: SUPPLEMENTATION THERAPY
     Dosage: 100 MG. DAILY
  4. CARDIZEM CD [Concomitant]
     Indication: BLOOD PRESSURE ABNORMAL
  5. B 12 [Concomitant]
     Indication: SUPPLEMENTATION THERAPY
     Dosage: DAILY
  6. B COMPLEX [Concomitant]
     Indication: SUPPLEMENTATION THERAPY
     Dosage: DAILY
  7. MALIC ACID [Concomitant]
     Indication: SUPPLEMENTATION THERAPY
     Dosage: DAILY
  8. GARLIC [Concomitant]
     Indication: SUPPLEMENTATION THERAPY
     Dosage: DAILY
  9. CRANBERRY [Concomitant]
     Indication: URINARY TRACT DISORDER
     Dosage: DAILY
  10. GLUCOSAMINE SULFATE WITH 1500 MSM [Concomitant]
     Indication: SUPPLEMENTATION THERAPY
     Dosage: DAILY
  11. LOVAZA [Concomitant]
     Indication: BLOOD TRIGLYCERIDES ABNORMAL
     Dosage: UNK

REACTIONS (8)
  - Arthritis [Not Recovered/Not Resolved]
  - Body height decreased [Not Recovered/Not Resolved]
  - Arthropathy [Not Recovered/Not Resolved]
  - Sleep disorder due to a general medical condition [Not Recovered/Not Resolved]
  - Intentional drug misuse [Not Recovered/Not Resolved]
  - Meniscus injury [Not Recovered/Not Resolved]
  - Muscle spasms [Not Recovered/Not Resolved]
  - Myalgia [Not Recovered/Not Resolved]
